FAERS Safety Report 20080042 (Version 1)
Quarter: 2021Q4

REPORT INFORMATION
  Report Type: Spontaneous
  Country: US (occurrence: US)
  Receive Date: 20211117
  Receipt Date: 20211117
  Transmission Date: 20220303
  Serious: Yes (Other)
  Sender: FDA-Public Use
  Company Number: US-GLAXOSMITHKLINE-US2021GSK236732

PATIENT
  Sex: Female

DRUGS (7)
  1. ZANTAC [Suspect]
     Active Substance: RANITIDINE HYDROCHLORIDE
     Indication: Gastric ulcer
     Dosage: 300 MG, QD, TWICE A DAY|ABOUT 150 MG EACH|ABOUT 2100 MG PER WEEK
     Route: 065
     Dates: start: 201308, end: 201509
  2. ZANTAC [Suspect]
     Active Substance: RANITIDINE HYDROCHLORIDE
     Indication: Gastric ulcer
     Dosage: 300 MG, QD, TWICE A DAY|ABOUT 150 MG EACH|ABOUT 2100 MG PER WEEK
     Route: 065
     Dates: start: 201308, end: 201509
  3. ZANTAC [Suspect]
     Active Substance: RANITIDINE HYDROCHLORIDE
     Indication: Gastric ulcer
     Dosage: 300 MG, QD, TWICE A DAY|ABOUT 150 MG EACH|ABOUT 2100 MG PER WEEK
     Route: 065
     Dates: start: 201308, end: 201509
  4. RANITIDINE [Suspect]
     Active Substance: RANITIDINE
     Indication: Gastric ulcer
     Dosage: 300 MG, QD, TWICE A DAY|ABOUT 150 MG EACH|ABOUT 2100 MG PER WEEK
     Route: 065
     Dates: start: 201308, end: 201509
  5. RANITIDINE HYDROCHLORIDE [Suspect]
     Active Substance: RANITIDINE HYDROCHLORIDE
     Indication: Gastric ulcer
     Dosage: 300 MG, QD,TWICE A DAY|ABOUT 150 MG EACH|ABOUT 2100 MG PER WEEK
     Route: 065
     Dates: start: 201308, end: 201509
  6. RANITIDINE HYDROCHLORIDE [Suspect]
     Active Substance: RANITIDINE HYDROCHLORIDE
     Indication: Gastric ulcer
     Dosage: 150 MG, QD, TWICE A DAY|ABOUT 150 MG EACH|ABOUT 2100 MG PER WEEK
     Route: 065
     Dates: start: 201308, end: 201509
  7. RANITIDINE [Suspect]
     Active Substance: RANITIDINE
     Indication: Gastric ulcer
     Dosage: 300 MG, QD, TWICE A DAY|ABOUT 150 MG EACH|ABOUT 2100 MG PER WEEK
     Route: 065
     Dates: start: 201308, end: 201509

REACTIONS (1)
  - Bladder cancer [Unknown]
